FAERS Safety Report 6262231-8 (Version None)
Quarter: 2009Q3

REPORT INFORMATION
  Report Type: 
  Country: None (occurrence: None)
  Receive Date: 20090708
  Receipt Date: 20090708
  Transmission Date: 20100115
  Serious: Yes (Disabling)
  Sender: FDA-Public Use
  Company Number: None

PATIENT
  Age: 59 Year
  Sex: Male
  Weight: 73.9363 kg

DRUGS (1)
  1. ZICAM (NASAL SWABS) [Suspect]
     Indication: NASOPHARYNGITIS
     Dates: start: 20090501, end: 20090601

REACTIONS (2)
  - ANOSMIA [None]
  - HYPOGEUSIA [None]
